FAERS Safety Report 21660049 (Version 1)
Quarter: 2022Q4

REPORT INFORMATION
  Report Type: Spontaneous
  Country: US (occurrence: US)
  Receive Date: 20221130
  Receipt Date: 20221130
  Transmission Date: 20230113
  Serious: Yes (Other)
  Sender: FDA-Public Use
  Company Number: US-BEH-2022152498

PATIENT
  Sex: Female

DRUGS (1)
  1. HIZENTRA [Suspect]
     Active Substance: HUMAN IMMUNOGLOBULIN G
     Indication: Immunodeficiency common variable
     Dosage: 9 GRAM, QW
     Route: 058
     Dates: start: 2022

REACTIONS (5)
  - Drug ineffective [Unknown]
  - Nasopharyngitis [Unknown]
  - Productive cough [Unknown]
  - Abdominal distension [Unknown]
  - Headache [Unknown]
